FAERS Safety Report 9590890 (Version 1)
Quarter: 2013Q4

REPORT INFORMATION
  Report Type: Spontaneous
  Country: US (occurrence: US)
  Receive Date: 20131003
  Receipt Date: 20131003
  Transmission Date: 20140711
  Serious: No
  Sender: FDA-Public Use
  Company Number: US-AMGEN-USASP2012073149

PATIENT
  Sex: Male
  Weight: 104.55 kg

DRUGS (11)
  1. ENBREL [Suspect]
     Indication: RHEUMATOID ARTHRITIS
     Dosage: 50 MG, QWK
     Route: 058
  2. CIALIS [Concomitant]
     Dosage: 10 MG, UNK
  3. METHOTREXATE [Concomitant]
     Dosage: 2.5 MG, UNK
  4. PREDNISONE [Concomitant]
     Dosage: 1 MG, UNK
  5. LOVASTATIN [Concomitant]
     Dosage: 10 MG, UNK
  6. DICLOFENAC [Concomitant]
     Dosage: 100 MG, ER
  7. LISINOPRIL [Concomitant]
     Dosage: 10 MG, UNK
  8. HYDROCHLOROTH [Concomitant]
     Dosage: 12.5 MG, UNK
  9. FOLIC ACID [Concomitant]
     Dosage: UNK
  10. HYDROCODONE [Concomitant]
     Dosage: 10-200MG
  11. IBUPROFEN [Concomitant]
     Dosage: UNK

REACTIONS (1)
  - Arthralgia [Unknown]
